FAERS Safety Report 9878969 (Version 3)
Quarter: 2014Q1

REPORT INFORMATION
  Report Type: Spontaneous
  Country: AR (occurrence: AR)
  Receive Date: 20140206
  Receipt Date: 20140219
  Transmission Date: 20141002
  Serious: Yes (Hospitalization)
  Sender: FDA-Public Use
  Company Number: AR-AMGEN-ARGSP2013064799

PATIENT
  Age: 65 Year
  Sex: Female

DRUGS (3)
  1. ENBREL [Suspect]
     Indication: PSORIATIC ARTHROPATHY
     Dosage: 50 MG, EVERY EIGHT DAYS
     Route: 065
     Dates: start: 20090304
  2. ENBREL [Suspect]
     Dosage: 50 MG, EVERY 15 DAYS
     Route: 065
     Dates: end: 2013
  3. TAMOXIFEN [Concomitant]
     Dosage: UNK

REACTIONS (3)
  - Malaise [Recovered/Resolved]
  - Arthropathy [Recovered/Resolved]
  - Pain in extremity [Recovering/Resolving]
